FAERS Safety Report 4743903-0 (Version None)
Quarter: 2005Q3

REPORT INFORMATION
  Report Type: 
  Country: None (occurrence: None)
  Receive Date: 20050812
  Receipt Date: 20050808
  Transmission Date: 20060218
  Serious: Yes (Death)
  Sender: FDA-Public Use
  Company Number: LB-MERCK-0508USA01834

PATIENT

DRUGS (1)
  1. PRIMAXIN [Suspect]
     Route: 051

REACTIONS (2)
  - NEOPLASM MALIGNANT [None]
  - SEPTIC SHOCK [None]
